FAERS Safety Report 6690399-8 (Version None)
Quarter: 2010Q2

REPORT INFORMATION
  Report Type: 
  Country: None (occurrence: None)
  Receive Date: 20100421
  Receipt Date: 20100416
  Transmission Date: 20101027
  Serious: Yes (Other)
  Sender: FDA-Public Use
  Company Number: SE-ASTRAZENECA-2010SE03253

PATIENT
  Age: 845 Month
  Sex: Female

DRUGS (1)
  1. SELOKEN ZOC [Suspect]
     Indication: HYPERTENSION
     Route: 048
     Dates: end: 20090628

REACTIONS (3)
  - ATRIOVENTRICULAR BLOCK COMPLETE [None]
  - CARDIAC PACEMAKER REPLACEMENT [None]
  - HEART RATE DECREASED [None]
